FAERS Safety Report 7464529-4 (Version None)
Quarter: 2011Q2

REPORT INFORMATION
  Report Type: 
  Country: None (occurrence: None)
  Receive Date: 20110509
  Receipt Date: 20110502
  Transmission Date: 20111010
  Serious: Yes (Hospitalization, Other)
  Sender: FDA-Public Use
  Company Number: ES-ELI_LILLY_AND_COMPANY-ES201105001302

PATIENT
  Sex: Male

DRUGS (6)
  1. BYETTA [Suspect]
     Dosage: 5 UG, QD
  2. BYETTA [Suspect]
     Dosage: 10 UG, QD
     Dates: start: 20100519
  3. METFORMIN [Concomitant]
     Dosage: UNK UG, UNK
  4. AMLODIPINE BESILATE [Concomitant]
  5. TORSEMIDE [Concomitant]
  6. NEXIUM [Concomitant]

REACTIONS (1)
  - PANCREATITIS [None]
